FAERS Safety Report 24866350 (Version 1)
Quarter: 2025Q1

REPORT INFORMATION
  Report Type: Report from Study
  Country: DE (occurrence: DE)
  Receive Date: 20250121
  Receipt Date: 20250121
  Transmission Date: 20250409
  Serious: Yes (Hospitalization, Other)
  Sender: Haleon PLC
  Company Number: DE-HALEON-2223122

PATIENT

DRUGS (1)
  1. ACETAMINOPHEN [Suspect]
     Active Substance: ACETAMINOPHEN
     Indication: Pain in extremity
     Route: 064

REACTIONS (8)
  - Tachypnoea [Recovered/Resolved]
  - Pulmonary arterial hypertension [Recovered/Resolved]
  - Foetal cardiac disorder [Recovered/Resolved]
  - Ductus arteriosus stenosis foetal [Recovered/Resolved]
  - Patent ductus arteriosus [Recovered/Resolved]
  - Neonatal cardiac failure [Recovered/Resolved]
  - Foetal exposure during pregnancy [Unknown]
  - Cyanosis [Recovered/Resolved]
